FAERS Safety Report 9357721 (Version 3)
Quarter: 2013Q4

REPORT INFORMATION
  Report Type: Spontaneous
  Country: GB (occurrence: GB)
  Receive Date: 20130620
  Receipt Date: 20131125
  Transmission Date: 20140711
  Serious: Yes (Death, Other)
  Sender: FDA-Public Use
  Company Number: GB-PFIZER INC-2013182054

PATIENT
  Age: 62 Year
  Sex: Female

DRUGS (1)
  1. SERTRALINE HCL [Suspect]
     Indication: DEPRESSION
     Dosage: 50 MG, UNK
     Route: 048
     Dates: start: 20130329

REACTIONS (4)
  - Completed suicide [Fatal]
  - Atrial fibrillation [Unknown]
  - Blood cholesterol increased [Unknown]
  - Blood albumin increased [Unknown]
